FAERS Safety Report 4657405-3 (Version None)
Quarter: 2005Q2

REPORT INFORMATION
  Report Type: 
  Country: None (occurrence: None)
  Receive Date: 20050510
  Receipt Date: 20050428
  Transmission Date: 20051028
  Serious: Yes (Other)
  Sender: FDA-Public Use
  Company Number: US-JNJFOC-20050407180

PATIENT
  Sex: Female
  Weight: 99.79 kg

DRUGS (13)
  1. REMICADE [Suspect]
     Indication: RHEUMATOID ARTHRITIS
     Dosage: 5 MG/KG, 1 IN 4-5 WEEKS
     Route: 042
  2. ALLEGRA [Concomitant]
  3. ZANTAC [Concomitant]
  4. METHOTREXATE [Concomitant]
  5. LODINE [Concomitant]
  6. FOLIC ACID [Concomitant]
  7. ATENOL [Concomitant]
  8. LASIX [Concomitant]
  9. SYNTHROID [Concomitant]
  10. TRAZIDONE [Concomitant]
  11. PROZAC [Concomitant]
  12. LORTAB [Concomitant]
  13. LORTAB [Concomitant]
     Dosage: UP TO 4 IN 1 DAY

REACTIONS (5)
  - COORDINATION ABNORMAL [None]
  - ELECTROMYOGRAM ABNORMAL [None]
  - FALL [None]
  - MEMORY IMPAIRMENT [None]
  - NEUROLOGICAL SYMPTOM [None]
